FAERS Safety Report 10518973 (Version 2)
Quarter: 2014Q4

REPORT INFORMATION
  Report Type: Spontaneous
  Country: MX (occurrence: MX)
  Receive Date: 20141015
  Receipt Date: 20141015
  Transmission Date: 20150528
  Serious: Yes (Death, Hospitalization, Other)
  Sender: FDA-Public Use
  Company Number: PHHY2014MX091588

PATIENT
  Age: 7 Year
  Sex: Male

DRUGS (17)
  1. TACROLIMUS. [Suspect]
     Active Substance: TACROLIMUS
     Indication: PRODUCT USED FOR UNKNOWN INDICATION
     Route: 061
  2. SERTRALINE [Suspect]
     Active Substance: SERTRALINE HYDROCHLORIDE
     Indication: COLITIS
     Route: 065
  3. BUSULFAN [Concomitant]
     Active Substance: BUSULFAN
     Indication: PRODUCT USED FOR UNKNOWN INDICATION
     Route: 065
  4. METHYLPREDNISOLONE. [Suspect]
     Active Substance: METHYLPREDNISOLONE
     Indication: IMMUNOSUPPRESSION
     Route: 065
  5. METRONIDAZOLE. [Suspect]
     Active Substance: METRONIDAZOLE
     Indication: COLITIS
     Route: 065
  6. IMATINIB [Suspect]
     Active Substance: IMATINIB
     Indication: CHRONIC MYELOID LEUKAEMIA
     Dosage: 450 MG/M2, UNK
  7. CICLOSPORIN [Suspect]
     Active Substance: CYCLOSPORINE
  8. OMEPRAZOLE. [Concomitant]
     Active Substance: OMEPRAZOLE
     Indication: PRODUCT USED FOR UNKNOWN INDICATION
     Route: 065
  9. GRANULOCYTE COLONY STIMULATING FACTOR [Concomitant]
     Active Substance: GRANULOCYTE COLONY-STIMULATING FACTOR NOS
     Indication: PRODUCT USED FOR UNKNOWN INDICATION
     Route: 065
  10. INFLIXIMAB [Concomitant]
     Active Substance: INFLIXIMAB
     Indication: PRODUCT USED FOR UNKNOWN INDICATION
     Route: 065
  11. IMATINIB [Suspect]
     Active Substance: IMATINIB
     Dosage: 300 MG, DAILY
  12. FLUCONAZOLE. [Concomitant]
     Active Substance: FLUCONAZOLE
     Indication: PRODUCT USED FOR UNKNOWN INDICATION
     Route: 065
  13. SMZ-TMP [Concomitant]
     Active Substance: SULFAMETHOXAZOLE\TRIMETHOPRIM
     Indication: PRODUCT USED FOR UNKNOWN INDICATION
     Route: 065
  14. CICLOSPORIN [Suspect]
     Active Substance: CYCLOSPORINE
     Indication: IMMUNOSUPPRESSION
     Route: 065
  15. PREDNISONE. [Suspect]
     Active Substance: PREDNISONE
     Indication: COLITIS
     Route: 065
  16. HYDROCORTISONE. [Suspect]
     Active Substance: HYDROCORTISONE
     Indication: PRODUCT USED FOR UNKNOWN INDICATION
     Dosage: 50 MG, UNK
     Route: 065
  17. ACYCLOVIR. [Concomitant]
     Active Substance: ACYCLOVIR
     Indication: PRODUCT USED FOR UNKNOWN INDICATION

REACTIONS (34)
  - Hypothermia [Unknown]
  - Nausea [Unknown]
  - Drug ineffective [Unknown]
  - Acute graft versus host disease [Fatal]
  - Complex partial seizures [Unknown]
  - Abdominal pain [Unknown]
  - Rash macular [Unknown]
  - Brain oedema [Unknown]
  - Hypokalaemia [Unknown]
  - Faecal volume increased [Unknown]
  - Erythema [Unknown]
  - Scab [Unknown]
  - Posterior reversible encephalopathy syndrome [Unknown]
  - Hyperglycaemia [Unknown]
  - Dermatitis [Unknown]
  - Hypocalcaemia [Unknown]
  - Cerebral atrophy [Unknown]
  - Hypoalbuminaemia [Unknown]
  - Pulmonary haemorrhage [Fatal]
  - Skin exfoliation [Unknown]
  - Nervous system disorder [Unknown]
  - Microangiopathy [Unknown]
  - Graft versus host disease in gastrointestinal tract [Unknown]
  - Vomiting [Unknown]
  - Pyrexia [Unknown]
  - Rash pruritic [Unknown]
  - Pallor [Recovered/Resolved]
  - Graft versus host disease in skin [Unknown]
  - Skin lesion [Unknown]
  - Hyponatraemia [Unknown]
  - Hypomagnesaemia [Unknown]
  - Cerebral haemorrhage [Unknown]
  - Bacterial infection [Unknown]
  - Generalised oedema [Unknown]
